FAERS Safety Report 16855519 (Version 1)
Quarter: 2019Q4

REPORT INFORMATION
  Report Type: Spontaneous
  Country: US (occurrence: US)
  Receive Date: 20190926
  Receipt Date: 20190926
  Transmission Date: 20200122
  Serious: Yes (Hospitalization)
  Sender: FDA-Public Use
  Company Number: None

PATIENT
  Age: 38 Year
  Sex: Female

DRUGS (9)
  1. TOBRAMYCIN. [Suspect]
     Active Substance: TOBRAMYCIN
     Indication: CYSTIC FIBROSIS
     Route: 055
  2. ZENPEP [Concomitant]
     Active Substance: PANCRELIPASE AMYLASE\PANCRELIPASE LIPASE\PANCRELIPASE PROTEASE
  3. NOVOLOG [Concomitant]
     Active Substance: INSULIN ASPART
  4. VITAMIN K [Concomitant]
     Active Substance: PHYTONADIONE
  5. AZITHROMYCIN ANHYDROUS. [Concomitant]
     Active Substance: AZITHROMYCIN ANHYDROUS
  6. FOLIC ACID. [Concomitant]
     Active Substance: FOLIC ACID
  7. SALINE [Concomitant]
     Active Substance: SODIUM CHLORIDE
  8. LANTUS [Concomitant]
     Active Substance: INSULIN GLARGINE
  9. SINGULAIR [Concomitant]
     Active Substance: MONTELUKAST SODIUM

REACTIONS (1)
  - Hospitalisation [None]
